FAERS Safety Report 14333990 (Version 1)
Quarter: 2017Q4

REPORT INFORMATION
  Report Type: Spontaneous
  Country: US (occurrence: US)
  Receive Date: 20171227
  Receipt Date: 20171227
  Transmission Date: 20180321
  Serious: No
  Sender: FDA-Public Use
  Company Number: None

PATIENT
  Sex: Female

DRUGS (1)
  1. IBRANCE [Suspect]
     Active Substance: PALBOCICLIB
     Indication: BREAST CANCER MALE
     Dosage: 75 MG ONCE DAILY FOR 14 DAYS ON AND 7 DAYS OFF BY MOUTH
     Route: 048
     Dates: start: 20151007

REACTIONS (1)
  - White blood cell count decreased [None]
